FAERS Safety Report 7538194-1 (Version None)
Quarter: 2011Q2

REPORT INFORMATION
  Report Type: 
  Country: None (occurrence: None)
  Receive Date: 20110609
  Receipt Date: 20020605
  Transmission Date: 20111010
  Serious: Yes (Death)
  Sender: FDA-Public Use
  Company Number: PHFR2002GB01331

PATIENT
  Sex: Female

DRUGS (2)
  1. FLUOXETINE HCL [Concomitant]
     Dosage: 200 MG, QD
     Route: 048
  2. CLOZAPINE [Suspect]
     Indication: SCHIZOPHRENIA
     Dosage: 100MG MANE, 400MG NOCTE
     Route: 048
     Dates: start: 19960607

REACTIONS (1)
  - DEATH [None]
